FAERS Safety Report 5904858-6 (Version None)
Quarter: 2008Q4

REPORT INFORMATION
  Report Type: 
  Country: None (occurrence: None)
  Receive Date: 20081001
  Receipt Date: 20080926
  Transmission Date: 20090506
  Serious: Yes (Hospitalization)
  Sender: FDA-Public Use
  Company Number: A0740767A

PATIENT
  Age: 46 Year
  Sex: Female
  Weight: 82.7 kg

DRUGS (5)
  1. AVANDIA [Suspect]
     Dosage: 8MG PER DAY
     Route: 048
     Dates: start: 20030401, end: 20061026
  2. GLUCOTROL [Concomitant]
  3. LIPITOR [Concomitant]
  4. DIOVAN [Concomitant]
  5. NAPROXEN [Concomitant]

REACTIONS (3)
  - CORONARY ARTERY DISEASE [None]
  - HEART INJURY [None]
  - MYOCARDIAL INFARCTION [None]
